FAERS Safety Report 15188361 (Version 2)
Quarter: 2018Q4

REPORT INFORMATION
  Report Type: Spontaneous
  Country: GB (occurrence: FR)
  Receive Date: 20180724
  Receipt Date: 20180731
  Transmission Date: 20190204
  Serious: Yes (Other)
  Sender: FDA-Public Use
  Company Number: FR-FRESENIUS KABI-FK201807942

PATIENT
  Sex: Female

DRUGS (9)
  1. GLUCOSE/CALCIUM [Suspect]
     Active Substance: CALCIUM\DEXTROSE
     Indication: PARENTERAL NUTRITION
     Dosage: 18 ML PER BAG, GLUCOSE CALCIUM 500ML 10%
     Route: 065
     Dates: start: 20180624, end: 20180625
  2. SMOFLIPID [Suspect]
     Active Substance: FISH OIL\MEDIUM-CHAIN TRIGLYCERIDES\OLIVE OIL\SOYBEAN OIL
     Indication: PARENTERAL NUTRITION
     Dosage: 65 ML PER BAG
     Route: 065
     Dates: start: 20180624, end: 20180625
  3. SODIUM CHLORIDE (MANUFACTURER UNKNOWN) [Suspect]
     Active Substance: SODIUM CHLORIDE
     Indication: PARENTERAL NUTRITION
     Dosage: 1.70 ML PER BAG, NACL 20% 500ML
     Route: 065
     Dates: start: 20180624, end: 20180625
  4. MAGNESIUM CHLORIDE. [Suspect]
     Active Substance: MAGNESIUM CHLORIDE
     Indication: PARENTERAL NUTRITION
     Dosage: 1.60 ML PER BAG, MGCL2 10% 500ML
     Route: 065
     Dates: start: 20180624, end: 20180625
  5. GLUCOSE (MANUFACTURER UNKNOWN) [Suspect]
     Active Substance: DEXTROSE
     Indication: PARENTERAL NUTRITION
     Dosage: 146 ML PER BAG
     Route: 065
     Dates: start: 20180624, end: 20180625
  6. PHOCYTAN [Suspect]
     Active Substance: .ALPHA.-GLUCOSE-1-PHOSPHATE
     Indication: PARENTERAL NUTRITION
     Dosage: 12 ML PER BAG
     Route: 065
     Dates: start: 20180624, end: 20180625
  7. PRIMENE [Suspect]
     Active Substance: ALANINE\ARGININE\ASPARTIC ACID\CYSTEINE\GLUTAMIC ACID\GLYCINE\HISTIDINE\ISOLEUCINE\LEUCINE\LYSINE\METHIONINE\ORNITHINE HYDROCHLORIDE\PHENYLALANINE\PROLINE\SERINE\TAURINE\THREONINE\TRYPTOPHAN\TYROSINE\VALINE
     Indication: PARENTERAL NUTRITION
     Dosage: 130 ML PER BAG
     Route: 065
     Dates: start: 20180624, end: 20180625
  8. CERNEVIT [Suspect]
     Active Substance: VITAMINS
     Indication: PARENTERAL NUTRITION
     Dosage: 2.50 ML PER BAG
     Route: 065
     Dates: start: 20180624, end: 20180625
  9. POTASSIUM CHLORIDE (MANUFACTURER UNKNOWN) [Suspect]
     Active Substance: POTASSIUM CHLORIDE
     Indication: PARENTERAL NUTRITION
     Dosage: 7.40 ML PER BAG, KCL 10% 500ML
     Route: 065
     Dates: start: 20180624, end: 20180625

REACTIONS (2)
  - Klebsiella sepsis [Unknown]
  - Septic shock [Unknown]

NARRATIVE: CASE EVENT DATE: 20180625
